FAERS Safety Report 7406661-7 (Version None)
Quarter: 2011Q2

REPORT INFORMATION
  Report Type: 
  Country: None (occurrence: None)
  Receive Date: 20110411
  Receipt Date: 20110106
  Transmission Date: 20111010
  Serious: No
  Sender: FDA-Public Use
  Company Number: US-BAYER-2011-029990

PATIENT
  Age: 48 Year
  Sex: Female
  Weight: 86 kg

DRUGS (2)
  1. INHALER [Concomitant]
     Route: 055
  2. ALEVE (CAPLET) [Suspect]
     Dosage: BOTTLE COUNT 24S
     Route: 048
     Dates: start: 20110105, end: 20110106

REACTIONS (1)
  - EYE SWELLING [None]
